FAERS Safety Report 11751850 (Version 1)
Quarter: 2015Q4

REPORT INFORMATION
  Report Type: Spontaneous
  Country: BR (occurrence: BR)
  Receive Date: 20151118
  Receipt Date: 20151118
  Transmission Date: 20160304
  Serious: Yes (Hospitalization, Other)
  Sender: FDA-Public Use
  Company Number: BR-JNJFOC-20151114087

PATIENT
  Sex: Male

DRUGS (2)
  1. REMICADE [Suspect]
     Active Substance: INFLIXIMAB
     Indication: RHEUMATOID ARTHRITIS
     Route: 042
     Dates: start: 20150825
  2. REMICADE [Suspect]
     Active Substance: INFLIXIMAB
     Indication: RHEUMATOID ARTHRITIS
     Dosage: REPORETD AS MORE THAN ONE YEAR PRIOR TO THE TIME OF THIS REPORT
     Route: 042

REACTIONS (2)
  - Post procedural haematoma [Unknown]
  - Varicose vein [Unknown]

NARRATIVE: CASE EVENT DATE: 2015
